FAERS Safety Report 8956043 (Version 6)
Quarter: 2014Q2

REPORT INFORMATION
  Report Type: Spontaneous
  Country: US (occurrence: US)
  Receive Date: 20121210
  Receipt Date: 20140501
  Transmission Date: 20141212
  Serious: Yes (Hospitalization, Other)
  Sender: FDA-Public Use
  Company Number: US-JNJFOC-20121000373

PATIENT
  Age: 29 Year
  Sex: Female

DRUGS (29)
  1. TOPAMAX [Suspect]
     Indication: CONVULSION
     Route: 048
  2. TYLENOL PM [Suspect]
     Indication: PRODUCT USED FOR UNKNOWN INDICATION
     Route: 048
  3. TYLENOL [Suspect]
     Indication: PYREXIA
     Route: 048
  4. TYLENOL [Suspect]
     Indication: NAUSEA
     Route: 048
  5. LOVENOX [Suspect]
     Indication: ANTICOAGULANT THERAPY
     Route: 065
  6. HYDROCODONE [Suspect]
     Indication: PAIN
     Route: 065
  7. OXYCODONE [Suspect]
     Indication: PAIN
     Route: 065
  8. ZOLOFT [Suspect]
     Indication: AGORAPHOBIA
     Route: 048
  9. ASPIRIN [Suspect]
     Indication: THROMBOSIS PROPHYLAXIS
     Route: 065
  10. LORTAB [Suspect]
     Indication: PAIN
     Route: 065
  11. PERCOCET [Suspect]
     Indication: ARTHRALGIA
     Route: 048
  12. AMBIEN [Suspect]
     Indication: PRODUCT USED FOR UNKNOWN INDICATION
     Route: 048
  13. DEMEROL HYDROCHLORIDE [Suspect]
     Indication: PAIN
     Route: 042
  14. PHENERGAN [Suspect]
     Indication: NAUSEA
     Route: 042
  15. PHENERGAN [Suspect]
     Indication: NAUSEA
     Route: 048
  16. METHYLPREDNISOLONE [Suspect]
     Indication: PRODUCT USED FOR UNKNOWN INDICATION
     Route: 065
  17. DEXTROMETHORPHAN [Suspect]
     Indication: ANTIALLERGIC THERAPY
     Route: 065
  18. ALBUTEROL [Suspect]
     Indication: PRODUCT USED FOR UNKNOWN INDICATION
     Route: 065
  19. BIAXIN [Suspect]
     Indication: PRODUCT USED FOR UNKNOWN INDICATION
     Route: 065
  20. NYSTAT [Suspect]
     Indication: PRODUCT USED FOR UNKNOWN INDICATION
     Route: 065
  21. TERCONAZOLE [Suspect]
     Indication: FUNGAL INFECTION
     Route: 065
  22. PROMETRIUM [Suspect]
     Indication: PRODUCT USED FOR UNKNOWN INDICATION
     Route: 065
  23. NITROFURANTOIN [Suspect]
     Indication: URINARY TRACT INFECTION
     Route: 065
  24. FLUCONAZOLE [Suspect]
     Indication: FUNGAL INFECTION
     Route: 065
  25. MECLIZINE [Suspect]
     Indication: NAUSEA
     Route: 065
  26. AZITHROMYCIN [Suspect]
     Indication: PRODUCT USED FOR UNKNOWN INDICATION
     Route: 065
  27. PSEUDOEPHEDRINE HYDROCHLORIDE [Suspect]
     Indication: SINUS DISORDER
     Route: 065
  28. CEPHALEXIN [Suspect]
     Indication: PRODUCT USED FOR UNKNOWN INDICATION
     Route: 065
  29. PRENATAL VITAMINS [Concomitant]
     Route: 065

REACTIONS (5)
  - Premature labour [Recovered/Resolved]
  - Exposure during pregnancy [Recovered/Resolved]
  - Foetal hypokinesia [Recovered/Resolved]
  - Vaginal haemorrhage [Unknown]
  - Depression [Unknown]
